FAERS Safety Report 24736004 (Version 4)
Quarter: 2025Q1

REPORT INFORMATION
  Report Type: Spontaneous
  Country: CZ (occurrence: CZ)
  Receive Date: 20241216
  Receipt Date: 20250114
  Transmission Date: 20250408
  Serious: Yes (Other)
  Sender: SANOFI AVENTIS
  Company Number: CZ-BIOVITRUM-2024-CZ-014856

PATIENT
  Age: 17 Year
  Sex: Male

DRUGS (4)
  1. ELOCTA [Suspect]
     Active Substance: EFMOROCTOCOG ALFA
     Indication: Factor VIII deficiency
     Dosage: 30 IU/KG, BIW
     Route: 042
     Dates: start: 2020
  2. ELOCTA [Suspect]
     Active Substance: EFMOROCTOCOG ALFA
     Indication: Factor VIII deficiency
     Dosage: 30 IU/KG, BIW
     Route: 042
     Dates: start: 2020
  3. ELOCTA [Suspect]
     Active Substance: EFMOROCTOCOG ALFA
     Dosage: 38 IU/KG, TIW
     Route: 042
     Dates: end: 202410
  4. ELOCTA [Suspect]
     Active Substance: EFMOROCTOCOG ALFA
     Dosage: 38 IU/KG, TIW
     Route: 042
     Dates: end: 202410

REACTIONS (2)
  - Haemarthrosis [Recovered/Resolved]
  - Synovitis [Not Recovered/Not Resolved]

NARRATIVE: CASE EVENT DATE: 20230901
